FAERS Safety Report 8522949-0 (Version None)
Quarter: 2012Q3

REPORT INFORMATION
  Report Type: 
  Country: None (occurrence: None)
  Receive Date: 20120720
  Receipt Date: 20120712
  Transmission Date: 20120928
  Serious: No
  Sender: FDA-Public Use
  Company Number: US-BIOGENIDEC-2012BI025972

PATIENT
  Sex: Male

DRUGS (3)
  1. TYSABRI [Suspect]
     Indication: MULTIPLE SCLEROSIS
     Route: 042
     Dates: start: 20080701, end: 20120327
  2. AMPYRA [Concomitant]
     Route: 042
     Dates: start: 20080701, end: 20101025
  3. AMPYRA [Concomitant]
     Indication: MULTIPLE SCLEROSIS
     Route: 042
     Dates: start: 20110526

REACTIONS (6)
  - CENTRAL NERVOUS SYSTEM LESION [None]
  - BALANCE DISORDER [None]
  - GAIT DISTURBANCE [None]
  - NEUROPATHY PERIPHERAL [None]
  - HEARING IMPAIRED [None]
  - PAIN IN EXTREMITY [None]
